FAERS Safety Report 7075298-4 (Version None)
Quarter: 2010Q4

REPORT INFORMATION
  Report Type: 
  Country: None (occurrence: None)
  Receive Date: 20101030
  Receipt Date: 20100811
  Transmission Date: 20110411
  Serious: No
  Sender: FDA-Public Use
  Company Number: US-WYE-H16774810

PATIENT
  Age: 45 Year
  Sex: Female
  Weight: 82.63 kg

DRUGS (7)
  1. ADVIL PM [Suspect]
     Indication: PAIN IN EXTREMITY
     Dosage: 2 CAPLETS EVERY 2-3 HOURS, TOTAL 7 CAPLETS
     Route: 048
     Dates: start: 20100804, end: 20100804
  2. ADVIL PM [Suspect]
     Indication: INSOMNIA
  3. PRAVASTATIN [Concomitant]
  4. PREVACID [Concomitant]
  5. XANAX [Concomitant]
  6. PLAVIX [Concomitant]
  7. ACETYLSALICYLIC ACID SRT [Concomitant]

REACTIONS (2)
  - DRUG INEFFECTIVE [None]
  - OVERDOSE [None]
